FAERS Safety Report 17807446 (Version 1)
Quarter: 2020Q2

REPORT INFORMATION
  Report Type: Spontaneous
  Country: RO (occurrence: RO)
  Receive Date: 20200520
  Receipt Date: 20200520
  Transmission Date: 20200714
  Serious: Yes (Other)
  Sender: FDA-Public Use
  Company Number: NVSC2020RO135931

PATIENT
  Sex: Male
  Weight: 3.3 kg

DRUGS (9)
  1. NO SPA [Suspect]
     Active Substance: DROTAVERINE HYDROCHLORIDE
     Indication: FOETAL EXPOSURE DURING PREGNANCY
     Dosage: MATERNAL DOSE: (ONE SINGLE DOSE) 40 MG VIAL
     Route: 064
  2. LEVOTHYROXINE SODIUM. [Suspect]
     Active Substance: LEVOTHYROXINE SODIUM
     Indication: FOETAL EXPOSURE DURING PREGNANCY
     Dosage: MATERNAL DOSE: 1.5 DF, QD (1.5 IN THE MORNING, 30 MINS BEFORE MEALS)
     Route: 064
  3. FOLIC ACID. [Suspect]
     Active Substance: FOLIC ACID
     Indication: FOETAL EXPOSURE DURING PREGNANCY
     Dosage: MATERNAL DOSE: 1 DF, QD (1 PER DAY, IN THE MORNING, AFTER MEALS)
     Route: 064
  4. CALCIUM GLUCONATE. [Concomitant]
     Active Substance: CALCIUM GLUCONATE
     Indication: FOETAL EXPOSURE DURING PREGNANCY
     Dosage: UNK
     Route: 064
  5. ONDANSETRON [Suspect]
     Active Substance: ONDANSETRON
     Indication: FOETAL EXPOSURE DURING PREGNANCY
     Dosage: MATERNAL DOSE: UNK (ONE SINGLE DOSE)
     Route: 064
  6. OXYTOCIN. [Concomitant]
     Active Substance: OXYTOCIN
     Indication: FOETAL EXPOSURE DURING PREGNANCY
     Dosage: UNK
     Route: 064
  7. CONTROLOC [Suspect]
     Active Substance: PANTOPRAZOLE SODIUM
     Indication: FOETAL EXPOSURE DURING PREGNANCY
     Dosage: MATERNAL DOSE: UNK (ONE SINGLE DOSE)
     Route: 064
  8. ACETYLSALICYLIC ACID [Suspect]
     Active Substance: ASPIRIN
     Indication: FOETAL EXPOSURE DURING PREGNANCY
     Dosage: MATERNAL DOSE: 1 DF, QD (1 PER DAY)
     Route: 064
  9. NO SPA [Suspect]
     Active Substance: DROTAVERINE HYDROCHLORIDE
     Dosage: MATERNAL DOSE: (3 PER DAY)
     Route: 064
     Dates: start: 201612, end: 201703

REACTIONS (5)
  - Respiratory distress [Unknown]
  - Foetal exposure during pregnancy [Unknown]
  - Bronchiolitis [Unknown]
  - Wheezing [Unknown]
  - Dairy intolerance [Unknown]
